FAERS Safety Report 10162195 (Version 1)
Quarter: 2014Q2

REPORT INFORMATION
  Report Type: Spontaneous
  Country: US (occurrence: None)
  Receive Date: 20140507
  Receipt Date: 20140507
  Transmission Date: 20141212
  Serious: Yes (Other)
  Sender: FDA-Public Use
  Company Number: 001721715A

PATIENT
  Age: 17 Year
  Sex: Female

DRUGS (7)
  1. PROACTIV + SKIN SMOOTHING EXFOLIATOR [Suspect]
     Indication: ACNE
     Dosage: ONCE DAILY DERMAL
     Dates: start: 20140303
  2. PROACTIVE + PORE TARGETING TREATMENT [Suspect]
     Indication: ACNE
     Dosage: ONCE DAILY DERMAL
     Dates: start: 20140303
  3. PROACTIVE + COMPLEXION PERFECTING HYDRATOR [Suspect]
     Indication: ACNE
     Dosage: ONCE DAILY DERMAL
     Dates: start: 20140303
  4. PROACTIV + MARK FADING PADS [Suspect]
     Indication: ACNE
     Dosage: ONCE DAILY DERMAL
     Dates: start: 20140303
  5. PROACTIV + SKIN PURIFYING MASK [Suspect]
     Indication: ACNE
     Dosage: ONCE DAILY DERMAL
     Dates: start: 20140303
  6. PAMPRIN [Concomitant]
  7. CLEARASIL [Concomitant]

REACTIONS (6)
  - Paraesthesia [None]
  - Swelling face [None]
  - Erythema [None]
  - Paraesthesia oral [None]
  - Lip swelling [None]
  - Cheilitis [None]
